FAERS Safety Report 4757440-0 (Version None)
Quarter: 2005Q3

REPORT INFORMATION
  Report Type: 
  Country: None (occurrence: None)
  Receive Date: 20050831
  Receipt Date: 20050823
  Transmission Date: 20060218
  Serious: Yes (Life-Threatening, Hospitalization, Disabling, Other)
  Sender: FDA-Public Use
  Company Number: CZ-BRISTOL-MYERS SQUIBB COMPANY-13090881

PATIENT
  Age: 17 Year
  Sex: Female

DRUGS (2)
  1. ABILIFY [Suspect]
     Indication: SCHIZOPHRENIA
     Route: 048
     Dates: start: 20050802
  2. ZYPREXA [Interacting]
     Indication: SCHIZOPHRENIA
     Route: 048
     Dates: start: 20050708, end: 20050822

REACTIONS (5)
  - AREFLEXIA [None]
  - COMA [None]
  - DRUG INTERACTION [None]
  - EPILEPSY [None]
  - MEDICATION ERROR [None]
